FAERS Safety Report 9862201 (Version 1)
Quarter: 2014Q1

REPORT INFORMATION
  Report Type: Spontaneous
  Country: US (occurrence: None)
  Receive Date: 20140131
  Receipt Date: 20140131
  Transmission Date: 20141002
  Serious: No
  Sender: FDA-Public Use
  Company Number: None

PATIENT
  Age: 61 Year
  Sex: Female

DRUGS (2)
  1. HUMIRA, 40 MG, ABBVIE [Suspect]
     Indication: RHEUMATOID ARTHRITIS
     Route: 058
     Dates: start: 20131212, end: 20131212
  2. HUMIRA, 40 MG, ABBVIE [Suspect]
     Indication: INFLAMMATION
     Route: 058
     Dates: start: 20131212, end: 20131212

REACTIONS (3)
  - Nausea [None]
  - Diarrhoea [None]
  - Dizziness [None]
